FAERS Safety Report 8066804-1 (Version None)
Quarter: 2011Q4

REPORT INFORMATION
  Report Type: 
  Country: None (occurrence: None)
  Receive Date: 20111221
  Receipt Date: 20101213
  Transmission Date: 20120403
  Serious: Yes (Other)
  Sender: FDA-Public Use
  Company Number: PHHY2010US85793

PATIENT
  Age: 71 Year
  Sex: Male

DRUGS (1)
  1. EXJADE [Suspect]
     Dosage: 500 MG DAILY, ORAL
     Route: 048

REACTIONS (2)
  - SERUM FERRITIN INCREASED [None]
  - ARTHRALGIA [None]
